FAERS Safety Report 7424388-2 (Version None)
Quarter: 2011Q2

REPORT INFORMATION
  Report Type: 
  Country: None (occurrence: None)
  Receive Date: 20110419
  Receipt Date: 20110408
  Transmission Date: 20111010
  Serious: Yes (Hospitalization, Disabling)
  Sender: FDA-Public Use
  Company Number: GB-PFIZER INC-2011078783

PATIENT
  Age: 85 Year
  Sex: Female

DRUGS (12)
  1. AMITRIPTYLINE [Concomitant]
  2. CODEINE [Concomitant]
  3. GAVISCON [Concomitant]
  4. CLARITHROMYCIN [Suspect]
     Indication: LOWER RESPIRATORY TRACT INFECTION
     Dosage: 500 MG
     Route: 048
     Dates: start: 20110323, end: 20110324
  5. METRONIDAZOLE [Suspect]
     Indication: LOWER RESPIRATORY TRACT INFECTION
     Dosage: 400 MG
     Route: 048
     Dates: start: 20110323, end: 20110324
  6. FLUCONAZOLE [Concomitant]
  7. LISINOPRIL [Concomitant]
  8. CYCLIZINE [Concomitant]
  9. ESOMEPRAZOLE [Concomitant]
  10. METOCLOPRAMIDE [Concomitant]
  11. NYSTATIN [Concomitant]
  12. PARACETAMOL [Concomitant]

REACTIONS (1)
  - DELIRIUM [None]
